FAERS Safety Report 9100184 (Version 2)
Quarter: 2013Q1

REPORT INFORMATION
  Report Type: Spontaneous
  Country: US (occurrence: US)
  Receive Date: 20130215
  Receipt Date: 20130227
  Transmission Date: 20140127
  Serious: Yes (Hospitalization, Other)
  Sender: FDA-Public Use
  Company Number: US-JNJFOC-20130205319

PATIENT
  Age: 81 Year
  Sex: Male
  Weight: 76.2 kg

DRUGS (8)
  1. XARELTO [Suspect]
     Indication: CEREBROVASCULAR ACCIDENT PROPHYLAXIS
     Dosage: 20 MG PILLS WERE CUT IN HALF SO THE PATIENT WAS USING 10 MG
     Route: 048
     Dates: end: 20121128
  2. XARELTO [Suspect]
     Indication: CEREBROVASCULAR ACCIDENT PROPHYLAXIS
     Route: 048
     Dates: start: 20121121
  3. XARELTO [Suspect]
     Indication: ATRIAL FIBRILLATION
     Route: 048
     Dates: start: 20121121
  4. XARELTO [Suspect]
     Indication: ATRIAL FIBRILLATION
     Dosage: 20 MG PILLS WERE CUT IN HALF SO THE PATIENT WAS USING 10 MG
     Route: 048
     Dates: end: 20121128
  5. ASPIRIN [Suspect]
     Indication: PRODUCT USED FOR UNKNOWN INDICATION
     Route: 065
  6. DILTIAZEM [Suspect]
     Indication: PRODUCT USED FOR UNKNOWN INDICATION
     Route: 065
  7. POTASSIUM [Suspect]
     Indication: PRODUCT USED FOR UNKNOWN INDICATION
     Route: 065
  8. LASIX [Suspect]
     Indication: PRODUCT USED FOR UNKNOWN INDICATION
     Route: 065

REACTIONS (3)
  - Cerebral haemorrhage [Recovering/Resolving]
  - Embolic stroke [Unknown]
  - Wrong technique in drug usage process [Unknown]
